FAERS Safety Report 9355594 (Version 2)
Quarter: 2013Q3

REPORT INFORMATION
  Report Type: Spontaneous
  Country: BE (occurrence: BE)
  Receive Date: 20130619
  Receipt Date: 20130701
  Transmission Date: 20140515
  Serious: Yes (Hospitalization)
  Sender: FDA-Public Use
  Company Number: BE-PFIZER INC-2013182105

PATIENT
  Age: 64 Year
  Sex: Female
  Weight: 60.5 kg

DRUGS (9)
  1. PANTOMED [Suspect]
     Indication: DYSPEPSIA
     Dosage: 40 MG, DAILY
     Route: 048
     Dates: start: 20130328, end: 20130403
  2. REDOMEX [Concomitant]
  3. ALPRAZOLAM [Concomitant]
  4. ASAFLOW [Concomitant]
     Dosage: 80 MG
  5. SIMVASTATIN [Concomitant]
     Dosage: 1 DOSAGE FORMS
  6. SELOZOK [Concomitant]
     Dosage: 0.5 DOSAGE FORMS
  7. CRESTOR [Concomitant]
     Dosage: 40 MG
  8. TETRYZOLINE [Concomitant]
     Indication: INTRAOCULAR PRESSURE TEST
  9. PROTECTIS [Concomitant]

REACTIONS (1)
  - Renal failure acute [Recovered/Resolved]
